FAERS Safety Report 20470497 (Version 1)
Quarter: 2022Q1

REPORT INFORMATION
  Report Type: Spontaneous
  Country: US (occurrence: None)
  Receive Date: 20220212
  Receipt Date: 20220212
  Transmission Date: 20220424
  Serious: Yes (Death)
  Sender: FDA-Public Use
  Company Number: None

PATIENT
  Age: 73 Year
  Sex: Male

DRUGS (1)
  1. REVLIMID [Suspect]
     Active Substance: LENALIDOMIDE
     Indication: T-cell lymphoma
     Dosage: FREQUENCY : DAILY;?
     Route: 048
     Dates: start: 20211207, end: 20220105

REACTIONS (4)
  - Hypercalcaemia [None]
  - Adult T-cell lymphoma/leukaemia [None]
  - Disease progression [None]
  - Therapy non-responder [None]

NARRATIVE: CASE EVENT DATE: 20220105
